FAERS Safety Report 7243031-9 (Version None)
Quarter: 2011Q1

REPORT INFORMATION
  Report Type: 
  Country: None (occurrence: None)
  Receive Date: 20110125
  Receipt Date: 20101021
  Transmission Date: 20110831
  Serious: No
  Sender: FDA-Public Use
  Company Number: US-AMGEN-USASP2010001234

PATIENT
  Age: 78 Year
  Sex: Female

DRUGS (7)
  1. PROLIA [Suspect]
     Dates: start: 20100923
  2. LASIX [Concomitant]
  3. TRAMADOL HCL [Concomitant]
  4. REQUIP [Concomitant]
  5. PROPRANOLOL [Concomitant]
  6. NEURONTIN [Concomitant]
  7. LEVOTHYROXINE SODIUM [Concomitant]

REACTIONS (2)
  - DERMATITIS [None]
  - RASH [None]
